FAERS Safety Report 7757647-4 (Version None)
Quarter: 2011Q3

REPORT INFORMATION
  Report Type: 
  Country: None (occurrence: None)
  Receive Date: 20110916
  Receipt Date: 20110912
  Transmission Date: 20111222
  Serious: Yes (Other)
  Sender: FDA-Public Use
  Company Number: PHHO2010NZ12597

PATIENT
  Sex: Male
  Weight: 62 kg

DRUGS (7)
  1. TASIGNA [Suspect]
     Dosage: 200 MG, UNK
     Route: 048
     Dates: start: 20101111, end: 20101130
  2. IMATINIB MESYLATE [Suspect]
     Dosage: 800 MG, QD
     Route: 048
     Dates: start: 20100210, end: 20100330
  3. TASIGNA [Suspect]
     Indication: CHRONIC MYELOID LEUKAEMIA
     Dosage: 800 MG, QD
     Route: 048
     Dates: start: 20100331, end: 20100705
  4. TASIGNA [Suspect]
     Dosage: NO TREATMENT
     Dates: start: 20100706, end: 20101110
  5. IMATINIB MESYLATE [Suspect]
     Indication: CHRONIC MYELOID LEUKAEMIA
     Dosage: 600 MG, QD
     Route: 048
     Dates: start: 20091208, end: 20100102
  6. IMATINIB MESYLATE [Suspect]
     Dosage: NO TREATMENT
     Route: 048
     Dates: start: 20110103, end: 20100110
  7. IMATINIB MESYLATE [Suspect]
     Dosage: 600 MG, QD
     Route: 048
     Dates: start: 20100111, end: 20100209

REACTIONS (3)
  - BONE MARROW FAILURE [None]
  - THROMBOCYTOPENIA [None]
  - APLASTIC ANAEMIA [None]
